FAERS Safety Report 5294818-3 (Version None)
Quarter: 2007Q2

REPORT INFORMATION
  Report Type: 
  Country: None (occurrence: None)
  Receive Date: 20070412
  Receipt Date: 20070402
  Transmission Date: 20071010
  Serious: Yes (Other)
  Sender: FDA-Public Use
  Company Number: FR-AVENTIS-200711205FR

PATIENT
  Age: 51 Year
  Sex: Male

DRUGS (4)
  1. TAXOTERE [Suspect]
     Route: 042
     Dates: start: 20061030, end: 20070112
  2. CISPLATIN [Suspect]
     Route: 042
     Dates: start: 20061030, end: 20070112
  3. FLUOROURACIL [Suspect]
     Route: 042
     Dates: start: 20061030, end: 20070112
  4. CETUXIMAB [Suspect]
     Route: 042
     Dates: start: 20060226, end: 20060313

REACTIONS (1)
  - MACULOPATHY [None]
